FAERS Safety Report 8137782-1 (Version None)
Quarter: 2012Q1

REPORT INFORMATION
  Report Type: 
  Country: None (occurrence: None)
  Receive Date: 20120215
  Receipt Date: 20120208
  Transmission Date: 20120608
  Serious: Yes (Other)
  Sender: FDA-Public Use
  Company Number: US-BAYER-2011-069823

PATIENT
  Age: 26 Year
  Sex: Female
  Weight: 112.47 kg

DRUGS (2)
  1. YAZ [Suspect]
     Indication: CONTRACEPTION
     Dosage: UNK
     Dates: start: 20070101, end: 20090101
  2. YASMIN [Suspect]
     Indication: CONTRACEPTION
     Dosage: UNK
     Dates: start: 20070101, end: 20090101

REACTIONS (4)
  - PAIN [None]
  - INJURY [None]
  - CHOLELITHIASIS [None]
  - GALLBLADDER DISORDER [None]
